FAERS Safety Report 4407139-5 (Version None)
Quarter: 2004Q3

REPORT INFORMATION
  Report Type: 
  Country: None (occurrence: None)
  Receive Date: 20040721
  Receipt Date: 20040713
  Transmission Date: 20050211
  Serious: Yes (Death)
  Sender: FDA-Public Use
  Company Number: 163-20785-04060031 (2)

PATIENT
  Age: 56 Year
  Sex: Female

DRUGS (1)
  1. THALOMID [Suspect]
     Indication: GLIOBLASTOMA MULTIFORME
     Dosage: 200 MG, DAILY, ORAL
     Route: 048
     Dates: start: 20040101, end: 20040401

REACTIONS (2)
  - DISEASE PROGRESSION [None]
  - GLIOBLASTOMA MULTIFORME [None]
